FAERS Safety Report 10571217 (Version 2)
Quarter: 2015Q1

REPORT INFORMATION
  Report Type: Spontaneous
  Country: US (occurrence: US)
  Receive Date: 20141107
  Receipt Date: 20150126
  Transmission Date: 20150720
  Serious: Yes (Other)
  Sender: FDA-Public Use
  Company Number: US-TEVA-520295USA

PATIENT
  Sex: Female

DRUGS (4)
  1. DEPAKOTE [Suspect]
     Active Substance: DIVALPROEX SODIUM
     Indication: SEIZURE
     Route: 065
  2. DIAMOX SEQUELS [Suspect]
     Active Substance: ACETAZOLAMIDE
     Indication: PSYCHOMOTOR SEIZURES
     Route: 065
  3. MYSOLINE [Suspect]
     Active Substance: PRIMIDONE
     Indication: SEIZURE
     Route: 065
  4. DILANTIN [Suspect]
     Active Substance: PHENYTOIN
     Indication: SEIZURE
     Route: 065

REACTIONS (4)
  - Seizure [Unknown]
  - Pyrexia [Unknown]
  - Drug ineffective [Unknown]
  - Gingival oedema [Unknown]
